FAERS Safety Report 8156458-8 (Version None)
Quarter: 2012Q1

REPORT INFORMATION
  Report Type: 
  Country: None (occurrence: None)
  Receive Date: 20120222
  Receipt Date: 20120213
  Transmission Date: 20120608
  Serious: Yes (Hospitalization)
  Sender: FDA-Public Use
  Company Number: US-GILEAD-2012-0050504

PATIENT
  Sex: Female

DRUGS (4)
  1. BLINDED PLACEBO [Suspect]
     Indication: PROPHYLAXIS AGAINST HIV INFECTION
     Dosage: 1 DF, UNK
     Dates: start: 20110215, end: 20111208
  2. TENOFOVIR DISOPROXIL FUMARATE [Suspect]
     Indication: PROPHYLAXIS AGAINST HIV INFECTION
     Dosage: 1 DF, UNK
     Dates: start: 20110215, end: 20111208
  3. TENOFOVIR DISOPROXIL FUMARATE [Suspect]
     Indication: PROPHYLAXIS AGAINST HIV INFECTION
     Dosage: 1 DF, UNK
     Dates: start: 20110215, end: 20111208
  4. BLINDED EMTRICITABINE/TENOFOVIR DISOPROXIL FUMARATE [Suspect]
     Indication: PROPHYLAXIS AGAINST HIV INFECTION
     Dosage: 1 DF, UNK
     Dates: start: 20110215, end: 20111208

REACTIONS (1)
  - HEADACHE [None]
